FAERS Safety Report 15437150 (Version 6)
Quarter: 2019Q1

REPORT INFORMATION
  Report Type: Report from Study
  Country: US (occurrence: US)
  Receive Date: 20180927
  Receipt Date: 20190214
  Transmission Date: 20190417
  Serious: Yes (Other)
  Sender: FDA-Public Use
  Company Number: US-CLOVIS ONCOLOGY-CLO-2018-000883

PATIENT
  Age: 62 Year
  Sex: Female
  Weight: 58 kg

DRUGS (22)
  1. RUBRACA [Suspect]
     Active Substance: RUCAPARIB CAMSYLATE
     Dosage: 600 MG, BID
     Route: 048
     Dates: start: 20180703
  2. RUBRACA [Suspect]
     Active Substance: RUCAPARIB CAMSYLATE
     Dosage: DECREASED DOSE
     Dates: start: 201810
  3. VITAMIN D3 [Concomitant]
     Active Substance: CHOLECALCIFEROL
     Indication: SUPPLEMENTATION THERAPY
     Dosage: 5000 IU, QD
     Route: 048
  4. CLOBETASOL [Concomitant]
     Active Substance: CLOBETASOL
     Indication: PRODUCT USED FOR UNKNOWN INDICATION
     Dosage: APPLY 3 TIMES A WEEK AT NIGHT X 30 DAYS, THEN 2 TIMES A WEEK
     Route: 061
  5. CLONAZEPAM. [Concomitant]
     Active Substance: CLONAZEPAM
     Indication: ANXIETY
     Dosage: 0.5 MG, QD
     Route: 048
  6. RUBRACA [Suspect]
     Active Substance: RUCAPARIB CAMSYLATE
     Dosage: 300 MG, BID
     Route: 048
     Dates: start: 20180707
  7. RUBRACA [Suspect]
     Active Substance: RUCAPARIB CAMSYLATE
     Dosage: 600 MG IN AM AND 300 MG IN PM
     Route: 048
     Dates: start: 2018
  8. MIRTAZAPINE. [Concomitant]
     Active Substance: MIRTAZAPINE
     Indication: PRODUCT USED FOR UNKNOWN INDICATION
     Dosage: 15 MG, HS
     Route: 048
  9. RUBRACA [Suspect]
     Active Substance: RUCAPARIB CAMSYLATE
     Dosage: 600 MG, BID
     Route: 048
     Dates: start: 20180904
  10. DEXAMETHASONE. [Concomitant]
     Active Substance: DEXAMETHASONE
     Indication: PRODUCT USED FOR UNKNOWN INDICATION
  11. ABILIFY [Concomitant]
     Active Substance: ARIPIPRAZOLE
     Indication: PRODUCT USED FOR UNKNOWN INDICATION
     Dosage: 2 MG, QD
     Route: 048
  12. B COMPLEX                          /00322001/ [Concomitant]
     Active Substance: CALCIUM PANTOTHENATE\CYANOCOBALAMIN\NIACINAMIDE\PYRIDOXINE HYDROCHLORIDE\RIBOFLAVIN\THIAMINE HYDROCHLORIDE
     Indication: SUPPLEMENTATION THERAPY
     Dosage: 1 CAP, QD
     Route: 048
  13. PEG 3350 [Concomitant]
     Active Substance: POLYETHYLENE GLYCOL 3350
     Indication: PRODUCT USED FOR UNKNOWN INDICATION
     Dosage: 0.17 G, QD
  14. RUBRACA [Suspect]
     Active Substance: RUCAPARIB CAMSYLATE
     Dosage: 300 MG, BID
     Route: 048
     Dates: start: 20180703, end: 2018
  15. IRON [Concomitant]
     Active Substance: IRON
     Indication: PRODUCT USED FOR UNKNOWN INDICATION
     Dosage: 50 MG, QD
     Route: 048
  16. ONDANSETRON [Concomitant]
     Active Substance: ONDANSETRON
     Indication: NAUSEA
     Dosage: 4 MG, PRN
     Route: 048
  17. DESVENLAFAXINE ER [Concomitant]
     Active Substance: DESVENLAFAXINE
     Indication: PRODUCT USED FOR UNKNOWN INDICATION
     Dosage: 100 MG, HS
     Route: 048
  18. FERROUS BISGLYCINATE [Concomitant]
     Active Substance: FERROUS BISGLYCINATE
     Indication: MINERAL SUPPLEMENTATION
     Dosage: 50 MG, QD
     Route: 048
  19. RUBRACA [Suspect]
     Active Substance: RUCAPARIB CAMSYLATE
     Indication: MALIGNANT PERITONEAL NEOPLASM
     Dosage: 600 MG, BID
     Route: 048
     Dates: start: 20180702, end: 20180707
  20. VITAMIN C [Concomitant]
     Active Substance: ASCORBIC ACID
     Indication: PRODUCT USED FOR UNKNOWN INDICATION
  21. ONDANSETRON [Concomitant]
     Active Substance: ONDANSETRON
     Indication: VOMITING
  22. METHYLCOBALAMIN. [Concomitant]
     Active Substance: METHYLCOBALAMIN
     Indication: SUPPLEMENTATION THERAPY
     Dosage: 1000 ?G, QD
     Route: 048

REACTIONS (18)
  - Depression [Recovering/Resolving]
  - Constipation [Not Recovered/Not Resolved]
  - Liver function test abnormal [Not Recovered/Not Resolved]
  - Decreased appetite [Recovering/Resolving]
  - Weight decreased [Unknown]
  - Insomnia [Not Recovered/Not Resolved]
  - Asthenia [Unknown]
  - Dizziness [Unknown]
  - Renal impairment [Unknown]
  - Hepatic function abnormal [Recovered/Resolved]
  - Blood creatinine increased [Not Recovered/Not Resolved]
  - Nausea [Unknown]
  - Abdominal pain [Unknown]
  - Fatigue [Unknown]
  - Drug ineffective [Unknown]
  - Anxiety [Recovering/Resolving]
  - Rash [Unknown]
  - Disorientation [Unknown]

NARRATIVE: CASE EVENT DATE: 2018
